FAERS Safety Report 5676753-1 (Version None)
Quarter: 2008Q1

REPORT INFORMATION
  Report Type: 
  Country: None (occurrence: None)
  Receive Date: 20080318
  Receipt Date: 20080312
  Transmission Date: 20080703
  Serious: Yes (Other)
  Sender: FDA-Public Use
  Company Number: THQ2008A00516

PATIENT

DRUGS (1)
  1. LEUPROLIDE ACETATE [Suspect]
     Dosage: INJECTION
     Dates: start: 20060101

REACTIONS (1)
  - EYE HAEMORRHAGE [None]
